FAERS Safety Report 5048818-9 (Version None)
Quarter: 2006Q3

REPORT INFORMATION
  Report Type: 
  Country: None (occurrence: None)
  Receive Date: 20060706
  Receipt Date: 20060623
  Transmission Date: 20061208
  Serious: Yes (Death)
  Sender: FDA-Public Use
  Company Number: ATWYE775125JUN06

PATIENT
  Age: 60 Year
  Sex: Male

DRUGS (3)
  1. EFECTIN (VENLAFAXINE HYDROCHLORIDE, TABLET, 0) [Suspect]
     Dosage: 50 MG 2X PER 1 DAY
     Dates: start: 20040101
  2. AMLODIPINE [Concomitant]
  3. TRAZODONE HCL [Concomitant]

REACTIONS (2)
  - CARDIAC ARREST [None]
  - VOMITING [None]
